FAERS Safety Report 9251371 (Version 1)
Quarter: 2013Q2

REPORT INFORMATION
  Report Type: Spontaneous
  Country: IT (occurrence: IT)
  Receive Date: 20130424
  Receipt Date: 20130424
  Transmission Date: 20140414
  Serious: Yes (Death)
  Sender: FDA-Public Use
  Company Number: IT-PFIZER INC-2013127693

PATIENT
  Age: 67 Year
  Sex: Male

DRUGS (2)
  1. SUTENT [Suspect]
     Indication: GASTROINTESTINAL STROMAL TUMOUR
     Dosage: 37.5 MG, 1X/DAY
     Route: 048
     Dates: start: 200710
  2. ZOLEDRONIC ACID [Concomitant]

REACTIONS (7)
  - Death [Fatal]
  - Diarrhoea [Unknown]
  - Palmar-plantar erythrodysaesthesia syndrome [Unknown]
  - Skin discolouration [Unknown]
  - Oedema [Unknown]
  - Hypertension [Unknown]
  - Hypothyroidism [Unknown]
